FAERS Safety Report 23924597 (Version 1)
Quarter: 2024Q2

REPORT INFORMATION
  Report Type: Spontaneous
  Country: US (occurrence: US)
  Receive Date: 20240531
  Receipt Date: 20240531
  Transmission Date: 20240715
  Serious: No
  Sender: FDA-Public Use
  Company Number: US-PFIZER INC-202400181011

PATIENT
  Age: 30 Year
  Sex: Male

DRUGS (3)
  1. ABROCITINIB [Suspect]
     Active Substance: ABROCITINIB
     Indication: Dermatitis atopic
     Dosage: 50 MG
  2. ABROCITINIB [Suspect]
     Active Substance: ABROCITINIB
     Dosage: 100 MG
  3. ABROCITINIB [Suspect]
     Active Substance: ABROCITINIB
     Dosage: 200 MG

REACTIONS (3)
  - Blood creatine phosphokinase increased [Unknown]
  - Therapeutic product effect incomplete [Unknown]
  - Off label use [Unknown]
